FAERS Safety Report 13262727 (Version 1)
Quarter: 2017Q1

REPORT INFORMATION
  Report Type: Spontaneous
  Country: US (occurrence: US)
  Receive Date: 20170223
  Receipt Date: 20170223
  Transmission Date: 20170428
  Serious: Yes (Other)
  Sender: FDA-Public Use
  Company Number: US-ZYDUS-013870

PATIENT
  Age: 60 Year
  Sex: Male

DRUGS (3)
  1. METHOTREXATE. [Suspect]
     Active Substance: METHOTREXATE
     Indication: CENTRAL NERVOUS SYSTEM LYMPHOMA
     Dosage: HIGH-DOSE MTX: 8 GM/M2
     Route: 042
  2. METHOTREXATE. [Suspect]
     Active Substance: METHOTREXATE
     Indication: CENTRAL NERVOUS SYSTEM LYMPHOMA
     Dosage: 0.07 UMOLE/L
     Route: 042
  3. RITUXIMAB [Concomitant]
     Active Substance: RITUXIMAB
     Indication: CENTRAL NERVOUS SYSTEM LYMPHOMA
     Route: 065

REACTIONS (8)
  - Brain herniation [Recovering/Resolving]
  - Hyporesponsive to stimuli [Recovering/Resolving]
  - Abnormal behaviour [Recovering/Resolving]
  - Intracranial mass [Recovered/Resolved]
  - Unresponsive to stimuli [Recovering/Resolving]
  - Cytotoxic oedema [Recovering/Resolving]
  - Leukoencephalopathy [Recovering/Resolving]
  - Mental impairment [Recovering/Resolving]
